FAERS Safety Report 20684200 (Version 2)
Quarter: 2022Q2

REPORT INFORMATION
  Report Type: Spontaneous
  Country: US (occurrence: US)
  Receive Date: 20220407
  Receipt Date: 20220418
  Transmission Date: 20220720
  Serious: Yes (Hospitalization)
  Sender: FDA-Public Use
  Company Number: US-TEVA-2022-US-2023657

PATIENT
  Age: 55 Year
  Sex: Male

DRUGS (13)
  1. QUETIAPINE [Suspect]
     Active Substance: QUETIAPINE
     Indication: Agitation
     Route: 065
  2. OLANZAPINE [Suspect]
     Active Substance: OLANZAPINE
     Indication: Agitation
     Route: 065
  3. CLONIDINE [Suspect]
     Active Substance: CLONIDINE
     Indication: Agitation
     Dosage: .2 MILLIGRAM DAILY;
     Route: 065
  4. CLONIDINE [Suspect]
     Active Substance: CLONIDINE
     Dosage: .4 MILLIGRAM DAILY;
     Route: 065
  5. PRAZOSIN [Suspect]
     Active Substance: PRAZOSIN
     Indication: Agitation
     Dosage: 1 G, NIGHTLY; AN INCREASE IN THE DOSE EVERY 2-3 DAYS UNTIL REACHING A TARGET DOSE OF 6 MG NIGHTLY WA
     Route: 065
  6. KETAMINE [Suspect]
     Active Substance: KETAMINE
     Indication: Agitation
     Route: 065
  7. CITALOPRAM [Suspect]
     Active Substance: CITALOPRAM HYDROBROMIDE
     Indication: Agitation
     Route: 065
  8. DEXTROMETHORPHAN [Concomitant]
     Active Substance: DEXTROMETHORPHAN
     Indication: Agitation
     Route: 065
  9. QUINIDINE [Concomitant]
     Active Substance: QUINIDINE
     Indication: Agitation
     Route: 065
  10. GALANTAMINE [Concomitant]
     Active Substance: GALANTAMINE
     Indication: Agitation
     Route: 065
  11. LORAZEPAM [Concomitant]
     Active Substance: LORAZEPAM
     Indication: Agitation
     Route: 065
  12. TRAZODONE [Concomitant]
     Active Substance: TRAZODONE HYDROCHLORIDE
     Indication: Agitation
     Route: 065
  13. MIRTAZAPINE [Concomitant]
     Active Substance: MIRTAZAPINE
     Indication: Agitation
     Route: 065

REACTIONS (5)
  - Aggression [Unknown]
  - Akathisia [Unknown]
  - Paradoxical drug reaction [Unknown]
  - Hypotension [Unknown]
  - Off label use [Unknown]
